FAERS Safety Report 4775200-1 (Version None)
Quarter: 2005Q3

REPORT INFORMATION
  Report Type: 
  Country: None (occurrence: None)
  Receive Date: 20050920
  Receipt Date: 20050909
  Transmission Date: 20060218
  Serious: Yes (Hospitalization)
  Sender: FDA-Public Use
  Company Number: 2005-132464-NL

PATIENT
  Sex: Female
  Weight: 2.98 kg

DRUGS (2)
  1. REMERON SOLTAB [Suspect]
     Dosage: TRANSPLACENTAL
     Route: 064
     Dates: start: 20050701
  2. REMERON SOLTAB [Suspect]
     Dosage: TRANSMAMMARY
     Route: 063

REACTIONS (3)
  - DRUG EXPOSURE DURING PREGNANCY [None]
  - DRUG EXPOSURE VIA BREAST MILK [None]
  - JAUNDICE NEONATAL [None]
